FAERS Safety Report 4702726-9 (Version None)
Quarter: 2005Q2

REPORT INFORMATION
  Report Type: 
  Country: None (occurrence: None)
  Receive Date: 20050624
  Receipt Date: 20050228
  Transmission Date: 20051028
  Serious: No
  Sender: FDA-Public Use
  Company Number: 2005BI004596

PATIENT
  Age: 44 Year
  Sex: Female
  Weight: 50.8029 kg

DRUGS (10)
  1. NATALIZUMAB [Suspect]
     Indication: MULTIPLE SCLEROSIS
     Dosage: 300 MG; QM; IV
     Route: 042
     Dates: start: 20050101, end: 20050222
  2. CLONOPIN [Concomitant]
  3. PEPCID [Concomitant]
  4. TOPAMAX [Concomitant]
  5. NEURONTIN [Concomitant]
  6. ANTIVERT [Concomitant]
  7. DIAZEPAM [Concomitant]
  8. INDEROL [Concomitant]
  9. EFFEXOR [Concomitant]
  10. TRAZODONE [Concomitant]

REACTIONS (7)
  - ASTHENIA [None]
  - DIFFICULTY IN WALKING [None]
  - DRY SKIN [None]
  - ERYTHEMA [None]
  - PAIN IN EXTREMITY [None]
  - PRURITUS [None]
  - RASH PAPULAR [None]
